FAERS Safety Report 13704277 (Version 8)
Quarter: 2021Q1

REPORT INFORMATION
  Report Type: Report from Study
  Country: US (occurrence: US)
  Receive Date: 20170630
  Receipt Date: 20210325
  Transmission Date: 20210419
  Serious: No
  Sender: FDA-Public Use
  Company Number: PHEH2017US020050

PATIENT
  Sex: Female

DRUGS (6)
  1. ILARIS [Suspect]
     Active Substance: CANAKINUMAB
     Dosage: 54 MG, QMO
     Route: 058
  2. ILARIS [Suspect]
     Active Substance: CANAKINUMAB
     Dosage: 150 MG, UNK
     Route: 058
     Dates: start: 20190415
  3. ILARIS [Suspect]
     Active Substance: CANAKINUMAB
     Dosage: UNK, QMO (ONCE MONTHLY)
     Route: 065
     Dates: start: 20170626
  4. ILARIS [Suspect]
     Active Substance: CANAKINUMAB
     Indication: STILL^S DISEASE
     Dosage: UNK
     Route: 065
  5. ILARIS [Suspect]
     Active Substance: CANAKINUMAB
     Dosage: UNK UNK, QMO (ONCE MONTHLY)
     Route: 065
     Dates: start: 20170512
  6. ILARIS [Suspect]
     Active Substance: CANAKINUMAB
     Dosage: 150 MG, EVERY 28 DAYS
     Route: 058

REACTIONS (2)
  - Inappropriate schedule of product administration [Unknown]
  - Maternal exposure timing unspecified [Unknown]

NARRATIVE: CASE EVENT DATE: 2019
